FAERS Safety Report 9276507 (Version 4)
Quarter: 2013Q3

REPORT INFORMATION
  Report Type: Spontaneous
  Country: AU (occurrence: AU)
  Receive Date: 20130507
  Receipt Date: 20130704
  Transmission Date: 20140515
  Serious: Yes (Hospitalization)
  Sender: FDA-Public Use
  Company Number: AU-BRISTOL-MYERS SQUIBB COMPANY-18852319

PATIENT
  Sex: Male

DRUGS (19)
  1. METFORMIN HCL [Suspect]
     Dates: end: 20130101
  2. SOTALOL [Suspect]
     Dosage: INITIALLY 240MG MOR AND 160MG NIGHT
     Route: 048
  3. NICORANDIL [Suspect]
     Indication: ANGINA PECTORIS
     Dosage: 20MG:BID
     Route: 048
     Dates: start: 2010
  4. GLICLAZIDE [Suspect]
     Dates: end: 20130101
  5. FRUSEMIDE [Suspect]
  6. INSPRA [Suspect]
     Indication: CARDIAC FAILURE
     Dates: start: 20110227, end: 20130101
  7. HYDRALAZINE [Suspect]
     Indication: CARDIAC FAILURE
     Dosage: 50MG IN MORNING?100MG IN NIGHT
     Dates: start: 2010
  8. QUINAPRIL HCL [Suspect]
     Indication: CARDIAC FAILURE
     Route: 048
     Dates: start: 2010
  9. CANDESARTAN [Suspect]
     Dates: end: 20130101
  10. PERHEXILINE MALEATE [Suspect]
     Dosage: INITIALLY 200MG IN MOR AND 100 MG IN NIGHT
     Route: 048
  11. CARVEDILOL [Suspect]
     Dosage: TO 50MG
  12. PRAZOSIN [Suspect]
     Route: 048
  13. LANTUS [Suspect]
     Route: 058
  14. NOVORAPID [Suspect]
     Dosage: INITIALLY:MOR:35 UNITS,NIGHT:40 UNITS?MOR:40,NIGHT:45 UNITS
     Route: 058
  15. ROSUVASTATIN [Suspect]
     Route: 048
  16. IVABRADINE [Concomitant]
     Route: 048
  17. DIGOXIN [Concomitant]
     Route: 048
  18. EZETIMIBE [Concomitant]
     Route: 048
  19. CLOPIDOGREL + ACETYLSALICYLIC ACID [Concomitant]
     Dosage: 1 DF- 75/100MG
     Route: 048

REACTIONS (3)
  - Renal failure acute [Recovered/Resolved]
  - Hypotension [Recovered/Resolved]
  - Drug abuse [Unknown]
